FAERS Safety Report 25697693 (Version 2)
Quarter: 2025Q3

REPORT INFORMATION
  Report Type: Spontaneous
  Country: KR (occurrence: KR)
  Receive Date: 20250819
  Receipt Date: 20250822
  Transmission Date: 20251021
  Serious: Yes (Hospitalization)
  Sender: BOEHRINGER INGELHEIM
  Company Number: KR-Komodo Health-a23aa000009S1teAAC

PATIENT
  Age: 7 Decade
  Sex: Female

DRUGS (2)
  1. JARDIANCE [Suspect]
     Active Substance: EMPAGLIFLOZIN
     Indication: Type 2 diabetes mellitus
  2. TWYNSTA [Suspect]
     Active Substance: AMLODIPINE BESYLATE\TELMISARTAN
     Indication: Hypertension

REACTIONS (4)
  - Sleep apnoea syndrome [Unknown]
  - Anaemia [Unknown]
  - Procedural pain [Not Recovered/Not Resolved]
  - Incision site swelling [Not Recovered/Not Resolved]
